FAERS Safety Report 4761171-0 (Version None)
Quarter: 2005Q3

REPORT INFORMATION
  Report Type: 
  Country: None (occurrence: None)
  Receive Date: 20050902
  Receipt Date: 20050902
  Transmission Date: 20060218
  Serious: Yes (Hospitalization)
  Sender: FDA-Public Use
  Company Number: None

PATIENT
  Sex: Female
  Weight: 85.9 kg

DRUGS (12)
  1. MESNA [Suspect]
     Indication: SPINDLE CELL SARCOMA
     Dosage: 500MG/M2   EVERY 4 WEEKS   IV
     Route: 042
     Dates: start: 20050815, end: 20050816
  2. IFOS [Suspect]
     Dosage: 2500MG/M2   EVERY 4 WEEKS   IV
     Route: 042
  3. TYLENOL [Concomitant]
  4. SYNTHROID [Concomitant]
  5. PROZAC [Concomitant]
  6. LIPITOR [Concomitant]
  7. HYDROCHLOROTHIAZIDE [Concomitant]
  8. TRIAMTERE [Concomitant]
  9. ATENOLOL [Concomitant]
  10. CALCIUM GLUCONATE [Concomitant]
  11. VITAMINS [Concomitant]
  12. LEUKINE [Concomitant]

REACTIONS (5)
  - CEREBRAL ISCHAEMIA [None]
  - DIARRHOEA [None]
  - HEMIPARESIS [None]
  - NAUSEA [None]
  - PYREXIA [None]
